FAERS Safety Report 8676261 (Version 4)
Quarter: 2013Q3

REPORT INFORMATION
  Report Type: Spontaneous
  Country: US (occurrence: US)
  Receive Date: 20120720
  Receipt Date: 20130708
  Transmission Date: 20140515
  Serious: No
  Sender: FDA-Public Use
  Company Number: US-ASTRAZENECA-2012SE00572

PATIENT
  Age: 58 Year
  Sex: Male
  Weight: 83.9 kg

DRUGS (31)
  1. SEROQUEL [Suspect]
     Indication: DEPRESSION
     Dosage: 100 MG 6 HS AND 100 MG ONE BID
     Route: 048
  2. SEROQUEL [Suspect]
     Indication: BIPOLAR DISORDER
     Dosage: 100 MG 6 HS AND 100 MG ONE BID
     Route: 048
  3. SEROQUEL [Suspect]
     Indication: INSOMNIA
     Dosage: 100 MG 6 HS AND 100 MG ONE BID
     Route: 048
  4. SEROQUEL [Suspect]
     Indication: SLEEP DISORDER
     Dosage: 100 MG 6 HS AND 100 MG ONE BID
     Route: 048
  5. SEROQUEL [Suspect]
     Indication: NERVOUSNESS
     Dosage: 100 MG 6 HS AND 100 MG ONE BID
     Route: 048
  6. SEROQUEL [Suspect]
     Indication: DEPRESSION
     Route: 048
  7. SEROQUEL [Suspect]
     Indication: BIPOLAR DISORDER
     Route: 048
  8. SEROQUEL [Suspect]
     Indication: INSOMNIA
     Route: 048
  9. SEROQUEL [Suspect]
     Indication: SLEEP DISORDER
     Route: 048
  10. SEROQUEL [Suspect]
     Indication: NERVOUSNESS
     Route: 048
  11. SEROQUEL [Suspect]
     Indication: DEPRESSION
     Route: 048
  12. SEROQUEL [Suspect]
     Indication: BIPOLAR DISORDER
     Route: 048
  13. SEROQUEL [Suspect]
     Indication: INSOMNIA
     Route: 048
  14. SEROQUEL [Suspect]
     Indication: SLEEP DISORDER
     Route: 048
  15. SEROQUEL [Suspect]
     Indication: NERVOUSNESS
     Route: 048
  16. SEROQUEL [Suspect]
     Indication: DEPRESSION
     Route: 048
  17. SEROQUEL [Suspect]
     Indication: BIPOLAR DISORDER
     Route: 048
  18. SEROQUEL [Suspect]
     Indication: INSOMNIA
     Route: 048
  19. SEROQUEL [Suspect]
     Indication: SLEEP DISORDER
     Route: 048
  20. SEROQUEL [Suspect]
     Indication: NERVOUSNESS
     Route: 048
  21. SEROQUEL [Suspect]
     Indication: DEPRESSION
     Route: 048
  22. SEROQUEL [Suspect]
     Indication: BIPOLAR DISORDER
     Route: 048
  23. SEROQUEL [Suspect]
     Indication: INSOMNIA
     Route: 048
  24. SEROQUEL [Suspect]
     Indication: SLEEP DISORDER
     Route: 048
  25. SEROQUEL [Suspect]
     Indication: NERVOUSNESS
     Route: 048
  26. SEROQUEL [Suspect]
     Indication: DEPRESSION
     Dosage: 200MG DURING THE DAY AND 600MG AT NIGHT DAILY
     Route: 048
  27. SEROQUEL [Suspect]
     Indication: BIPOLAR DISORDER
     Dosage: 200MG DURING THE DAY AND 600MG AT NIGHT DAILY
     Route: 048
  28. SEROQUEL [Suspect]
     Indication: INSOMNIA
     Dosage: 200MG DURING THE DAY AND 600MG AT NIGHT DAILY
     Route: 048
  29. SEROQUEL [Suspect]
     Indication: SLEEP DISORDER
     Dosage: 200MG DURING THE DAY AND 600MG AT NIGHT DAILY
     Route: 048
  30. SEROQUEL [Suspect]
     Indication: NERVOUSNESS
     Dosage: 200MG DURING THE DAY AND 600MG AT NIGHT DAILY
     Route: 048
  31. CELEXA [Concomitant]

REACTIONS (5)
  - Nasopharyngitis [Unknown]
  - Insomnia [Unknown]
  - Laryngitis [Unknown]
  - Intentional drug misuse [Unknown]
  - Drug dose omission [Unknown]
